FAERS Safety Report 19261778 (Version 3)
Quarter: 2021Q4

REPORT INFORMATION
  Report Type: Spontaneous
  Country: PL (occurrence: PL)
  Receive Date: 20210515
  Receipt Date: 20211023
  Transmission Date: 20220303
  Serious: Yes (Hospitalization, Other)
  Sender: FDA-Public Use
  Company Number: PL-BAYER-2021-140009

PATIENT
  Age: 71 Year
  Sex: Male

DRUGS (1)
  1. XARELTO [Suspect]
     Active Substance: RIVAROXABAN
     Indication: Product used for unknown indication
     Dosage: 20 MG
     Route: 048
     Dates: start: 2017, end: 2017

REACTIONS (6)
  - Ischaemic stroke [Recovered/Resolved]
  - Thrombocytopenia [Unknown]
  - Fall [Recovered/Resolved]
  - Hemiplegia [Recovered/Resolved]
  - Dysstasia [Recovered/Resolved]
  - Loss of consciousness [Recovered/Resolved]

NARRATIVE: CASE EVENT DATE: 20170101
